FAERS Safety Report 14058131 (Version 1)
Quarter: 2017Q4

REPORT INFORMATION
  Report Type: Report from Study
  Country: US (occurrence: US)
  Receive Date: 20171006
  Receipt Date: 20171006
  Transmission Date: 20180321
  Serious: Yes (Death)
  Sender: FDA-Public Use
  Company Number: US-PFIZER INC-2017428648

PATIENT

DRUGS (4)
  1. CISPLATIN. [Suspect]
     Active Substance: CISPLATIN
     Indication: RETINOBLASTOMA
     Dosage: 3.5 MG/KG, DAILY (4 CYCLES)
  2. CYCLOPHOSPHAMIDE. [Suspect]
     Active Substance: CYCLOPHOSPHAMIDE
     Indication: RETINOBLASTOMA
     Dosage: 65 MG/KG, CYCLIC (4 CYCLES) (X2 DAYS)
  3. ETOPOSIDE. [Suspect]
     Active Substance: ETOPOSIDE
     Indication: RETINOBLASTOMA
     Dosage: 4 MG/KG, CYCLIC (4 CYCLES) (X2 DAYS)
  4. VINCRISTINE SULFATE. [Suspect]
     Active Substance: VINCRISTINE SULFATE
     Indication: RETINOBLASTOMA
     Dosage: 0.05 MG/KG, DAILY (4 CYCLES)

REACTIONS (1)
  - Death [Fatal]
